FAERS Safety Report 7507185 (Version 4)
Quarter: 2013Q3

REPORT INFORMATION
  Report Type: Spontaneous
  Country: US (occurrence: US)
  Receive Date: 20100729
  Receipt Date: 20130729
  Transmission Date: 20140515
  Serious: Yes (Hospitalization, Congenital Anomaly, Other)
  Sender: FDA-Public Use
  Company Number: US-PFIZER INC-2010092579

PATIENT
  Sex: Female
  Weight: 2.4 kg

DRUGS (3)
  1. ZOLOFT [Suspect]
     Indication: DEPRESSION
     Dosage: UNK
     Route: 064
     Dates: start: 2005
  2. ZOLOFT [Suspect]
     Dosage: 25 MG, UNK
     Route: 064
     Dates: start: 20060130
  3. ZOLOFT [Suspect]
     Dosage: 50 MG, UNK
     Route: 064
     Dates: start: 20060224

REACTIONS (8)
  - Foetal exposure during pregnancy [Unknown]
  - Coarctation of the aorta [Recovered/Resolved]
  - Ventricular septal defect [Unknown]
  - Congenital mitral valve stenosis [Unknown]
  - Heart disease congenital [Unknown]
  - Heart disease congenital [Unknown]
  - Bicuspid aortic valve [Unknown]
  - Left ventricular hypertrophy [Unknown]
